FAERS Safety Report 6199911-9 (Version None)
Quarter: 2009Q2

REPORT INFORMATION
  Report Type: 
  Country: None (occurrence: None)
  Receive Date: 20090520
  Receipt Date: 20090520
  Transmission Date: 20091009
  Serious: Yes (Hospitalization)
  Sender: FDA-Public Use
  Company Number: None

PATIENT
  Sex: Male
  Weight: 92.1 kg

DRUGS (40)
  1. SORAFENIB 200MG EVERY AM PO [Suspect]
     Indication: MALIGNANT MELANOMA
     Dosage: 200 MG EVERY AM PO
     Route: 048
     Dates: start: 20090424, end: 20090507
  2. SORAFENIB [Suspect]
     Dosage: 400 MG EVERY PM PO
     Route: 048
  3. ZOFRAN [Concomitant]
  4. VOLTARIN [Concomitant]
  5. CONATEDINCE [Concomitant]
  6. NASAL COM [Concomitant]
  7. SAW PALMETTO [Concomitant]
  8. FIBER CON [Concomitant]
  9. LOVENOX [Concomitant]
  10. CLARITIN [Concomitant]
  11. OXYCODONE [Concomitant]
  12. COLACE [Concomitant]
  13. TYLENOL [Concomitant]
  14. FENTANYL-100 [Concomitant]
  15. ZALPIDENZ [Concomitant]
  16. POTASSIUM CHLORIDE [Concomitant]
  17. MAGNESIUM OXIDE [Concomitant]
  18. DECADRON [Concomitant]
  19. DILAUDID [Concomitant]
  20. BENADRYL [Concomitant]
  21. HYDROCORDISONE [Concomitant]
  22. AMBIEN [Concomitant]
  23. SENOKOT [Concomitant]
  24. DULCOLAX [Concomitant]
  25. MAG OXIDE [Concomitant]
  26. LACTEATED RINGERS [Concomitant]
  27. MORPHINE [Concomitant]
  28. VERSED [Concomitant]
  29. HEPARIN [Concomitant]
  30. VISIPAQUE [Concomitant]
  31. LICODAINE [Concomitant]
  32. CEFAZOLIN [Concomitant]
  33. GLYCOPYRROLATE [Concomitant]
  34. HYDROMORPHONE HCL [Concomitant]
  35. MIDAZOLAM HCL [Concomitant]
  36. NEOSTIGMINE [Concomitant]
  37. PHENYLEPHRINE [Concomitant]
  38. PROPOFOL [Concomitant]
  39. PROTAMINE SULFATE [Concomitant]
  40. VECURONIUM BROMIDE [Concomitant]

REACTIONS (2)
  - INFECTION [None]
  - SKIN ULCER [None]
